FAERS Safety Report 8597436-4 (Version None)
Quarter: 2012Q3

REPORT INFORMATION
  Report Type: 
  Country: None (occurrence: None)
  Receive Date: 20120816
  Receipt Date: 20120810
  Transmission Date: 20120928
  Serious: Yes (Death, Life-Threatening, Hospitalization)
  Sender: FDA-Public Use
  Company Number: AU-JNJFOC-20120610977

PATIENT
  Sex: Male
  Weight: 86.2 kg

DRUGS (10)
  1. PANTOPRAZOLE [Concomitant]
     Indication: GASTROOESOPHAGEAL REFLUX DISEASE
     Route: 065
     Dates: start: 20070101
  2. CYPROTERONE [Concomitant]
     Indication: HORMONE THERAPY
     Route: 065
     Dates: start: 20100819
  3. ABIRATERONE ACETATE [Suspect]
     Route: 048
  4. PREDNISONE TAB [Suspect]
     Indication: PROSTATE CANCER METASTATIC
     Route: 048
     Dates: start: 20120131, end: 20120618
  5. ACETAMINOPHEN [Concomitant]
     Indication: PAIN
     Route: 065
     Dates: start: 20060101
  6. ABIRATERONE ACETATE [Suspect]
     Indication: PROSTATE CANCER METASTATIC
     Route: 048
     Dates: start: 20120131, end: 20120618
  7. DOXEPIN [Concomitant]
     Indication: DEPRESSION
     Route: 065
     Dates: start: 20060101
  8. ZOLADEX [Concomitant]
     Indication: HORMONE THERAPY
     Route: 065
     Dates: start: 20070301
  9. ATENOLOL [Concomitant]
     Indication: HYPERTENSION
     Route: 065
     Dates: start: 20060101
  10. TAMSULOSIN HCL [Concomitant]
     Indication: BENIGN PROSTATIC HYPERPLASIA
     Route: 065
     Dates: start: 20070301

REACTIONS (1)
  - DIARRHOEA [None]
